FAERS Safety Report 18168883 (Version 3)
Quarter: 2020Q4

REPORT INFORMATION
  Report Type: Spontaneous
  Country: US (occurrence: US)
  Receive Date: 20200819
  Receipt Date: 20201106
  Transmission Date: 20210113
  Serious: Yes (Other)
  Sender: FDA-Public Use
  Company Number: US-PFIZER INC-2020318359

PATIENT
  Age: 52 Year
  Sex: Female

DRUGS (2)
  1. IBRANCE [Suspect]
     Active Substance: PALBOCICLIB
     Dosage: 125 MG
     Dates: start: 20200716, end: 20200806
  2. IBRANCE [Suspect]
     Active Substance: PALBOCICLIB
     Dosage: 100 MG
     Dates: start: 20200921, end: 20201012

REACTIONS (5)
  - Neutrophil count decreased [Unknown]
  - Neutropenia [Unknown]
  - Blood test abnormal [Unknown]
  - White blood cell count decreased [Unknown]
  - Fatigue [Unknown]
